FAERS Safety Report 5013588-7 (Version None)
Quarter: 2006Q2

REPORT INFORMATION
  Report Type: 
  Country: None (occurrence: None)
  Receive Date: 20060530
  Receipt Date: 20060523
  Transmission Date: 20061013
  Serious: Yes (Hospitalization)
  Sender: FDA-Public Use
  Company Number: 2006PK01139

PATIENT
  Age: 29 Year
  Sex: Male
  Weight: 89 kg

DRUGS (11)
  1. SEROQUEL [Suspect]
     Route: 048
     Dates: start: 20060306, end: 20060306
  2. SEROQUEL [Suspect]
     Route: 048
     Dates: start: 20060307, end: 20060316
  3. SEROQUEL [Suspect]
     Route: 048
     Dates: start: 20060317, end: 20060402
  4. SEROQUEL [Suspect]
     Route: 048
     Dates: start: 20060403
  5. EFFEXOR [Suspect]
     Route: 048
     Dates: start: 20060203, end: 20060205
  6. EFFEXOR [Suspect]
     Route: 048
     Dates: start: 20060206, end: 20060209
  7. EFFEXOR [Suspect]
     Route: 048
     Dates: start: 20060210, end: 20060214
  8. EFFEXOR [Suspect]
     Route: 048
     Dates: start: 20060215, end: 20060302
  9. EFFEXOR [Suspect]
     Route: 048
     Dates: start: 20060303, end: 20060308
  10. EFFEXOR [Suspect]
     Route: 048
     Dates: start: 20060309, end: 20060312
  11. EFFEXOR [Suspect]
     Route: 048
     Dates: start: 20060313, end: 20060314

REACTIONS (1)
  - CIRCULATORY COLLAPSE [None]
